FAERS Safety Report 15395906 (Version 1)
Quarter: 2018Q3

REPORT INFORMATION
  Report Type: Spontaneous
  Country: US (occurrence: US)
  Receive Date: 20180912
  Receipt Date: 20180912
  Transmission Date: 20181010
  Serious: Yes (Death)
  Sender: FDA-Public Use
  Company Number: None

PATIENT
  Age: 78 Year
  Sex: Male
  Weight: 77.3 kg

DRUGS (2)
  1. ELIQUIS [Suspect]
     Active Substance: APIXABAN
     Indication: ATRIAL FIBRILLATION
     Route: 048
  2. ASPIRIN. [Suspect]
     Active Substance: ASPIRIN
     Indication: PERIPHERAL VASCULAR DISORDER
     Route: 048

REACTIONS (7)
  - Duodenal ulcer haemorrhage [None]
  - Small intestinal haemorrhage [None]
  - Melaena [None]
  - Haemoglobin decreased [None]
  - Hypotension [None]
  - Septic shock [None]
  - Anaemia [None]

NARRATIVE: CASE EVENT DATE: 20180810
